FAERS Safety Report 20893536 (Version 1)
Quarter: 2022Q2

REPORT INFORMATION
  Report Type: Spontaneous
  Country: CA (occurrence: CA)
  Receive Date: 20220531
  Receipt Date: 20220531
  Transmission Date: 20220721
  Serious: Yes (Life-Threatening, Hospitalization, Other)
  Sender: FDA-Public Use
  Company Number: CA-Accord-222933

PATIENT
  Age: 36 Year
  Sex: Female

DRUGS (7)
  1. AMITRIPTYLINE [Interacting]
     Active Substance: AMITRIPTYLINE
     Indication: Analgesic therapy
     Route: 048
  2. PREGABALIN [Interacting]
     Active Substance: PREGABALIN
     Indication: Analgesic therapy
     Route: 048
  3. DULOXETINE [Interacting]
     Active Substance: DULOXETINE
     Indication: Analgesic therapy
     Route: 048
  4. TRAMADOL HYDROCHLORIDE [Interacting]
     Active Substance: TRAMADOL HYDROCHLORIDE
     Indication: Analgesic therapy
     Route: 048
  5. ACETAMINOPHEN [Interacting]
     Active Substance: ACETAMINOPHEN
     Indication: Analgesic therapy
     Route: 048
  6. TRIAZOLAM [Interacting]
     Active Substance: TRIAZOLAM
     Indication: Analgesic therapy
     Route: 048
  7. AMITRIPTYLINE\PERPHENAZINE [Interacting]
     Active Substance: AMITRIPTYLINE\PERPHENAZINE
     Indication: Musculoskeletal pain
     Route: 065

REACTIONS (2)
  - Serotonin syndrome [Recovered/Resolved]
  - Labelled drug-drug interaction issue [Unknown]
